FAERS Safety Report 5669482-1 (Version None)
Quarter: 2008Q1

REPORT INFORMATION
  Report Type: 
  Country: None (occurrence: None)
  Receive Date: 20080312
  Receipt Date: 20080312
  Transmission Date: 20080703
  Serious: Yes (Hospitalization)
  Sender: FDA-Public Use
  Company Number: None

PATIENT
  Sex: Female
  Weight: 111.1313 kg

DRUGS (4)
  1. HALDOL [Suspect]
     Indication: SCHIZOPHRENIA
     Dosage: 10MG; 175MG BID/ Q 4WK PO/IM
     Route: 048
     Dates: start: 20071221, end: 20080225
  2. CHOZOPINE (FAZACHO) [Suspect]
     Indication: SCHIZOPHRENIA
     Dosage: 400 MG 9 PM PO
     Route: 048
     Dates: start: 20071221, end: 20080225
  3. METOPROLOL TARTRATE [Concomitant]
  4. ASCORBID ACID [Concomitant]

REACTIONS (4)
  - BLOOD GLUCOSE INCREASED [None]
  - DEPRESSED LEVEL OF CONSCIOUSNESS [None]
  - FALL [None]
  - STUPOR [None]
